FAERS Safety Report 7847105-0 (Version None)
Quarter: 2011Q4

REPORT INFORMATION
  Report Type: 
  Country: None (occurrence: None)
  Receive Date: 20111025
  Receipt Date: 20111020
  Transmission Date: 20120403
  Serious: Yes (Other)
  Sender: FDA-Public Use
  Company Number: GB-MERCK-1110GBR00082

PATIENT
  Age: 51 Year
  Sex: Male
  Weight: 120 kg

DRUGS (9)
  1. CLOTRIMAZOLE [Concomitant]
     Route: 065
  2. RAMIPRIL [Concomitant]
     Route: 065
  3. ASPIRIN [Concomitant]
     Route: 065
  4. GLICLAZIDE [Concomitant]
     Route: 065
  5. METFORMIN [Concomitant]
     Route: 065
  6. ACETAMINOPHEN [Concomitant]
     Route: 065
  7. JANUVIA [Suspect]
     Indication: DIABETES MELLITUS
     Route: 048
     Dates: start: 20110623
  8. DULOXETINE HYDROCHLORIDE [Concomitant]
     Route: 065
  9. FLUCONAZOLE [Concomitant]
     Route: 065

REACTIONS (2)
  - BLISTER [None]
  - OROPHARYNGEAL BLISTERING [None]
